FAERS Safety Report 6833361-4 (Version None)
Quarter: 2010Q3

REPORT INFORMATION
  Report Type: 
  Country: None (occurrence: None)
  Receive Date: 20100712
  Receipt Date: 20070323
  Transmission Date: 20110219
  Serious: No
  Sender: FDA-Public Use
  Company Number: US-PFIZER INC-2007024758

PATIENT
  Sex: Female
  Weight: 77.11 kg

DRUGS (4)
  1. CHANTIX [Suspect]
     Indication: SMOKING CESSATION THERAPY
     Dates: start: 20070301
  2. ZIAC [Concomitant]
  3. BENICAR [Concomitant]
  4. XANAX [Concomitant]

REACTIONS (1)
  - COUGH [None]
